FAERS Safety Report 17654963 (Version 1)
Quarter: 2020Q2

REPORT INFORMATION
  Report Type: Spontaneous
  Country: US (occurrence: US)
  Receive Date: 20200410
  Receipt Date: 20200410
  Transmission Date: 20200713
  Serious: No
  Sender: FDA-Public Use
  Company Number: US-BIOGEN-2019BI00788761

PATIENT
  Sex: Male

DRUGS (1)
  1. TECFIDERA [Suspect]
     Active Substance: DIMETHYL FUMARATE
     Indication: MULTIPLE SCLEROSIS
     Route: 048
     Dates: start: 20190515

REACTIONS (12)
  - Lymphadenopathy [Unknown]
  - Periorbital swelling [Unknown]
  - Depression [Unknown]
  - Pain in extremity [Unknown]
  - Abdominal discomfort [Unknown]
  - Dyspnoea [Unknown]
  - Vertigo [Unknown]
  - Anxiety [Unknown]
  - Retching [Unknown]
  - Blood thyroid stimulating hormone increased [Unknown]
  - Pruritus [Unknown]
  - Immunosuppression [Not Recovered/Not Resolved]
